FAERS Safety Report 4684699-0 (Version None)
Quarter: 2005Q2

REPORT INFORMATION
  Report Type: 
  Country: None (occurrence: None)
  Receive Date: 20050531
  Receipt Date: 20050207
  Transmission Date: 20051028
  Serious: Yes (Other)
  Sender: FDA-Public Use
  Company Number: USA050290131

PATIENT
  Sex: Female

DRUGS (7)
  1. ZYPREXA [Suspect]
     Indication: SOMNOLENCE
     Dates: start: 20030201
  2. KLONOPIN [Concomitant]
  3. . [Concomitant]
  4. . [Concomitant]
  5. . [Concomitant]
  6. . [Concomitant]
  7. . [Concomitant]

REACTIONS (8)
  - AGGRESSION [None]
  - DEEP VEIN THROMBOSIS [None]
  - DELUSION [None]
  - INCREASED APPETITE [None]
  - PARANOIA [None]
  - PERSECUTORY DELUSION [None]
  - THINKING ABNORMAL [None]
  - WEIGHT INCREASED [None]
